FAERS Safety Report 11124581 (Version 1)
Quarter: 2015Q2

REPORT INFORMATION
  Report Type: Spontaneous
  Country: US (occurrence: None)
  Receive Date: 20150519
  Receipt Date: 20150519
  Transmission Date: 20150821
  Serious: Yes (Disabling)
  Sender: FDA-Public Use
  Company Number: None

PATIENT
  Age: 41 Year
  Sex: Female
  Weight: 63.5 kg

DRUGS (1)
  1. FLUCONAZOLE 150 MG DIFLUCAN [Suspect]
     Active Substance: FLUCONAZOLE
     Indication: DEPRESSION
     Route: 048
     Dates: start: 20141208, end: 20150208

REACTIONS (1)
  - Pollakiuria [None]

NARRATIVE: CASE EVENT DATE: 20141208
